FAERS Safety Report 13090492 (Version 1)
Quarter: 2017Q1

REPORT INFORMATION
  Report Type: Spontaneous
  Country: US (occurrence: US)
  Receive Date: 20170105
  Receipt Date: 20170105
  Transmission Date: 20170428
  Serious: No
  Sender: FDA-Public Use
  Company Number: US-ACTELION-A-US2016-147776

PATIENT
  Age: 56 Year
  Sex: Female

DRUGS (2)
  1. AQUAPHOR [Concomitant]
     Active Substance: PETROLATUM
  2. VALCHLOR [Suspect]
     Active Substance: MECHLORETHAMINE
     Indication: MYCOSIS FUNGOIDES
     Dosage: UNK, THIN FILM 4X/WEEK
     Route: 061

REACTIONS (3)
  - Application site dryness [Not Recovered/Not Resolved]
  - Burning sensation [Not Recovered/Not Resolved]
  - Application site pruritus [Not Recovered/Not Resolved]
